FAERS Safety Report 4443750-3 (Version None)
Quarter: 2004Q3

REPORT INFORMATION
  Report Type: 
  Country: None (occurrence: None)
  Receive Date: 20040802
  Receipt Date: 20040528
  Transmission Date: 20050211
  Serious: No
  Sender: FDA-Public Use
  Company Number: 2004-117245-NL

PATIENT
  Age: 20 Year
  Sex: Female
  Weight: 67.3 kg

DRUGS (6)
  1. NUVARING [Suspect]
     Indication: CONTRACEPTION
     Dosage: DF DAILY VAGINAL
     Route: 067
     Dates: start: 20040515, end: 20040704
  2. RAMSES VAGINAL JELLY [Concomitant]
  3. MULTI-VITAMINS [Concomitant]
  4. CALCIUM [Concomitant]
  5. VITAMIN C [Concomitant]
  6. VITAMIN E [Concomitant]

REACTIONS (4)
  - ABDOMINAL PAIN [None]
  - INSOMNIA [None]
  - VAGINAL CONTRACEPTIVE DEVICE EXPELLED [None]
  - WEIGHT INCREASED [None]
